FAERS Safety Report 9934055 (Version 1)
Quarter: 2014Q1

REPORT INFORMATION
  Report Type: Spontaneous
  Country: US (occurrence: US)
  Receive Date: 20140228
  Receipt Date: 20140228
  Transmission Date: 20141002
  Serious: No
  Sender: FDA-Public Use
  Company Number: US-ABBVIE-13P-163-1176257-00

PATIENT
  Sex: Male
  Weight: 108.96 kg

DRUGS (10)
  1. VITAMIN D [Concomitant]
     Indication: VITAMIN D DEFICIENCY
  2. VITAMIN C [Concomitant]
     Indication: SUPPLEMENTATION THERAPY
  3. MULTIVITAMIN [Concomitant]
     Indication: SUPPLEMENTATION THERAPY
  4. B COMPLEX [Concomitant]
     Indication: SUPPLEMENTATION THERAPY
  5. NIACIN [Concomitant]
     Indication: BLOOD CHOLESTEROL INCREASED
  6. ASPIRIN [Concomitant]
     Indication: PRODUCT USED FOR UNKNOWN INDICATION
  7. ANDROGEL [Suspect]
     Indication: BLOOD TESTOSTERONE DECREASED
     Dates: end: 201311
  8. LOSARTIN [Concomitant]
     Indication: HYPERTENSION
  9. PRAVASTATIN [Concomitant]
     Indication: BLOOD CHOLESTEROL INCREASED
  10. MONTELUKAST [Concomitant]
     Indication: PRODUCT USED FOR UNKNOWN INDICATION

REACTIONS (2)
  - Acne [Recovered/Resolved]
  - Drug dose omission [Unknown]
